FAERS Safety Report 10603290 (Version 1)
Quarter: 2014Q4

REPORT INFORMATION
  Report Type: Spontaneous
  Country: US (occurrence: US)
  Receive Date: 20141124
  Receipt Date: 20141124
  Transmission Date: 20150529
  Serious: Yes (Other)
  Sender: FDA-Public Use
  Company Number: US-GILEAD-2014-0123734

PATIENT
  Sex: Female

DRUGS (1)
  1. HARVONI [Suspect]
     Active Substance: LEDIPASVIR\SOFOSBUVIR
     Indication: PRODUCT USED FOR UNKNOWN INDICATION
     Route: 065

REACTIONS (8)
  - Phantom pain [Unknown]
  - Diarrhoea [Unknown]
  - Unevaluable event [Unknown]
  - Suicidal ideation [Unknown]
  - Pain [Unknown]
  - Insomnia [Unknown]
  - Retching [Unknown]
  - Migraine [Unknown]
